FAERS Safety Report 13437914 (Version 1)
Quarter: 2017Q2

REPORT INFORMATION
  Report Type: Spontaneous
  Country: US (occurrence: US)
  Receive Date: 20170413
  Receipt Date: 20170413
  Transmission Date: 20170830
  Serious: Yes (Other)
  Sender: FDA-Public Use
  Company Number: PHEH2017US009708

PATIENT
  Sex: Female
  Weight: 46.5 kg

DRUGS (6)
  1. MACRODANTIN [Concomitant]
     Active Substance: NITROFURANTOIN
     Indication: PRODUCT USED FOR UNKNOWN INDICATION
     Dosage: 50 MG, UNK
     Route: 065
  2. NORCO [Concomitant]
     Active Substance: ACETAMINOPHEN\HYDROCODONE BITARTRATE
     Indication: PRODUCT USED FOR UNKNOWN INDICATION
     Dosage: 10-325 MG
     Route: 065
  3. IBRANCE [Suspect]
     Active Substance: PALBOCICLIB
     Indication: BREAST CANCER METASTATIC
     Dosage: 125 MG, UNK (EVERY FOR 21 DAYS)
     Route: 065
     Dates: start: 20161207, end: 20161228
  4. LETROZOLE. [Suspect]
     Active Substance: LETROZOLE
     Indication: BREAST CANCER METASTATIC
     Dosage: 2.5 MG, QD
     Route: 065
     Dates: start: 20161102
  5. ALLBEE WITH C [Concomitant]
     Indication: PRODUCT USED FOR UNKNOWN INDICATION
     Route: 065
  6. ZAPRON [Concomitant]
     Indication: PRODUCT USED FOR UNKNOWN INDICATION
     Dosage: 8 MG, QD
     Route: 048

REACTIONS (15)
  - Breast cancer metastatic [Unknown]
  - Epistaxis [Unknown]
  - Vertigo [Unknown]
  - Thrombocytopenia [Unknown]
  - Metastases to bone marrow [Unknown]
  - Haematocrit decreased [Unknown]
  - Dizziness [Unknown]
  - Constipation [Unknown]
  - Neutropenia [Unknown]
  - Malignant neoplasm progression [Unknown]
  - Haemoglobin decreased [Unknown]
  - Tooth fracture [Unknown]
  - Mean cell volume increased [Unknown]
  - Abdominal pain upper [Recovered/Resolved]
  - Upper respiratory tract congestion [Unknown]
